FAERS Safety Report 15700689 (Version 3)
Quarter: 2021Q2

REPORT INFORMATION
  Report Type: Spontaneous
  Country: US (occurrence: US)
  Receive Date: 20181207
  Receipt Date: 20210528
  Transmission Date: 20210716
  Serious: Yes (Other)
  Sender: FDA-Public Use
  Company Number: US-SA-2018SA333350

PATIENT
  Age: 57 Year
  Sex: Female

DRUGS (1)
  1. AUBAGIO [Suspect]
     Active Substance: TERIFLUNOMIDE
     Indication: MULTIPLE SCLEROSIS
     Dosage: 14 MG, QD
     Route: 048
     Dates: start: 20180925

REACTIONS (3)
  - Multiple sclerosis relapse [Unknown]
  - Multiple sclerosis [Unknown]
  - Drug ineffective [Unknown]

NARRATIVE: CASE EVENT DATE: 202104
